FAERS Safety Report 4832578-8 (Version None)
Quarter: 2005Q4

REPORT INFORMATION
  Report Type: 
  Country: None (occurrence: None)
  Receive Date: 20051117
  Receipt Date: 20051103
  Transmission Date: 20060501
  Serious: Yes (Hospitalization)
  Sender: FDA-Public Use
  Company Number: FACT0500667

PATIENT
  Age: 44 Year
  Sex: Male

DRUGS (1)
  1. FACTIVE [Suspect]
     Indication: RESPIRATORY TRACT INFECTION BACTERIAL
     Dosage: 320 MG, QD, ORAL
     Route: 048
     Dates: start: 20051025, end: 20051029

REACTIONS (3)
  - ANAPHYLACTIC REACTION [None]
  - CONFUSIONAL STATE [None]
  - RASH MACULAR [None]
